FAERS Safety Report 24233549 (Version 1)
Quarter: 2024Q3

REPORT INFORMATION
  Report Type: Spontaneous
  Country: US (occurrence: US)
  Receive Date: 20240821
  Receipt Date: 20240821
  Transmission Date: 20241017
  Serious: Yes (Other)
  Sender: AMERICAN REGENT
  Company Number: US-AMERICAN REGENT INC-2024003191

PATIENT
  Age: 56 Year
  Sex: Female

DRUGS (5)
  1. TRANEXAMIC ACID [Suspect]
     Active Substance: TRANEXAMIC ACID
     Indication: Haemorrhage prophylaxis
     Dosage: 1 G OF TXA WAS MIXED INTO 350 ML OF TUMESCENT (EPINEPHRINE/LIDOCAINE/BUPIVACAINE) FOR A TXA CONCENTR
  2. TRANEXAMIC ACID [Suspect]
     Active Substance: TRANEXAMIC ACID
     Indication: Prophylaxis
  3. LIDOCAINE HYDROCHLORIDE [Suspect]
     Active Substance: LIDOCAINE HYDROCHLORIDE
     Indication: Local anaesthesia
     Dosage: 1 G OF TXA WAS MIXED INTO 350 ML OF TUMESCENT (EPINEPHRINE/LIDOCAINE/BUPIVACAINE)
  4. EPINEPHRINE [Concomitant]
     Active Substance: EPINEPHRINE
     Indication: Local anaesthesia
     Dosage: 1 G OF TXA WAS MIXED INTO 350 ML OF TUMESCENT (EPINEPHRINE/LIDOCAINE/BUPIVACAINE)
  5. BUPIVACAINE [Concomitant]
     Active Substance: BUPIVACAINE
     Indication: Local anaesthesia
     Dosage: 1 G OF TXA WAS MIXED INTO 350 ML OF TUMESCENT (EPINEPHRINE/LIDOCAINE/BUPIVACAINE)

REACTIONS (5)
  - Ischaemia [Recovering/Resolving]
  - Skin discolouration [Recovering/Resolving]
  - Eschar [Recovering/Resolving]
  - Product use in unapproved indication [Recovered/Resolved]
  - Incorrect route of product administration [Recovered/Resolved]
